FAERS Safety Report 4675110-4 (Version None)
Quarter: 2005Q2

REPORT INFORMATION
  Report Type: 
  Country: None (occurrence: None)
  Receive Date: 20050526
  Receipt Date: 20050222
  Transmission Date: 20051028
  Serious: Yes (Hospitalization)
  Sender: FDA-Public Use
  Company Number: US-MERCK-0502USA03172

PATIENT
  Age: 25 Year
  Sex: Male
  Weight: 105 kg

DRUGS (2)
  1. VIOXX [Suspect]
     Indication: TOOTHACHE
     Route: 048
     Dates: start: 20030101, end: 20030127
  2. VIOXX [Suspect]
     Indication: SENSITIVITY OF TEETH
     Route: 048
     Dates: start: 20030101, end: 20030127

REACTIONS (5)
  - ACUTE MYOCARDIAL INFARCTION [None]
  - ANXIETY [None]
  - ATHEROSCLEROSIS [None]
  - CORONARY ARTERY DISEASE [None]
  - PAIN [None]
